FAERS Safety Report 4635492-6 (Version None)
Quarter: 2005Q2

REPORT INFORMATION
  Report Type: 
  Country: None (occurrence: None)
  Receive Date: 20050413
  Receipt Date: 20050411
  Transmission Date: 20051028
  Serious: Yes (Hospitalization)
  Sender: FDA-Public Use
  Company Number: Q05-009

PATIENT
  Age: 72 Year
  Sex: Male
  Weight: 73.4827 kg

DRUGS (7)
  1. SAMARIUM 153 LEXIDRONAM [Suspect]
     Indication: METASTASES TO BONE
     Dosage: 79.0 MCI
     Dates: start: 20050310
  2. SAMARIUM 153 LEXIDRONAM [Suspect]
     Indication: PROSTATE CANCER
     Dosage: 79.0 MCI
     Dates: start: 20050310
  3. DILAUDID [Concomitant]
  4. ZOFRAN [Concomitant]
  5. SOMA [Concomitant]
  6. CONCERTA [Concomitant]
  7. KYTRIL [Concomitant]

REACTIONS (3)
  - DYSPHAGIA [None]
  - FLUID INTAKE REDUCED [None]
  - ORAL INTAKE REDUCED [None]
